FAERS Safety Report 14436741 (Version 1)
Quarter: 2018Q1

REPORT INFORMATION
  Report Type: Spontaneous
  Country: FR (occurrence: FR)
  Receive Date: 20180125
  Receipt Date: 20180125
  Transmission Date: 20180509
  Serious: Yes (Hospitalization)
  Sender: FDA-Public Use
  Company Number: FR-ROCHE-2056110

PATIENT
  Age: 66 Year
  Sex: Female
  Weight: 51 kg

DRUGS (5)
  1. VEMURAFENIB. [Suspect]
     Active Substance: VEMURAFENIB
     Indication: MALIGNANT MELANOMA
     Route: 048
     Dates: start: 20171003, end: 20171015
  2. STILNOX [Concomitant]
     Active Substance: ZOLPIDEM TARTRATE
     Dosage: COATED TABLET
     Route: 048
  3. EVISTA [Concomitant]
     Active Substance: RALOXIFENE HYDROCHLORIDE
     Dosage: COATED TABLET
     Route: 048
  4. TANGANIL [Concomitant]
     Active Substance: ACETYLLEUCINE
     Dosage: COMPRESSED
     Route: 048
  5. COBIMETINIB. [Suspect]
     Active Substance: COBIMETINIB
     Indication: PROPHYLAXIS
     Route: 048
     Dates: start: 20171003, end: 20171015

REACTIONS (4)
  - Lichenoid keratosis [Recovered/Resolved]
  - Rash maculo-papular [Recovered/Resolved]
  - Cell death [Recovered/Resolved]
  - Rhabdomyolysis [Recovered/Resolved]

NARRATIVE: CASE EVENT DATE: 20171011
